FAERS Safety Report 9746503 (Version 3)
Quarter: 2014Q2

REPORT INFORMATION
  Report Type: Spontaneous
  Country: US (occurrence: US)
  Receive Date: 20131211
  Receipt Date: 20140619
  Transmission Date: 20141212
  Serious: Yes (Other)
  Sender: FDA-Public Use
  Company Number: US-BAYER-2013-151080

PATIENT
  Age: 35 Year
  Sex: Female
  Weight: 99.77 kg

DRUGS (6)
  1. YAZ [Suspect]
     Indication: CONTRACEPTION
     Dosage: UNK
     Dates: start: 2007, end: 2009
  2. YAZ [Suspect]
     Indication: ACNE
  3. PROPOXYPHENE HCL AND ACETAMINOPHEN [Concomitant]
     Dosage: 100-600 MG
  4. LEXAPRO [Concomitant]
     Indication: DEPRESSION
  5. LEXAPRO [Concomitant]
     Indication: ANXIETY
  6. NAPROXEN [Concomitant]
     Indication: PAIN

REACTIONS (6)
  - Deep vein thrombosis [None]
  - Thrombophlebitis superficial [None]
  - Thrombosis [None]
  - Injury [None]
  - Pain [None]
  - Pain [None]
